FAERS Safety Report 4629322-6 (Version None)
Quarter: 2005Q2

REPORT INFORMATION
  Report Type: 
  Country: None (occurrence: None)
  Receive Date: 20050405
  Receipt Date: 20050322
  Transmission Date: 20051028
  Serious: Yes (Hospitalization)
  Sender: FDA-Public Use
  Company Number: 2005-BP-04711AU

PATIENT
  Age: 80 Year
  Sex: Male

DRUGS (5)
  1. MOBIC [Suspect]
     Indication: PAIN
     Dosage: PO
     Route: 048
     Dates: start: 20041010, end: 20041017
  2. HYDRENE (DYAZIDE) (TA) [Concomitant]
  3. CITALOPRAM HYDROBROMIDE (CITALOPRAM HYDROBROMIDE) (TA) [Concomitant]
  4. ASPIRIN [Concomitant]
  5. AMLODIPINE (AMLODIPINE) (TA) [Concomitant]

REACTIONS (2)
  - ISCHAEMIC LIMB PAIN [None]
  - RASH GENERALISED [None]
